FAERS Safety Report 8757595 (Version 2)
Quarter: 2013Q1

REPORT INFORMATION
  Report Type: Spontaneous
  Country: US (occurrence: US)
  Receive Date: 20120828
  Receipt Date: 20130207
  Transmission Date: 20140127
  Serious: No
  Sender: FDA-Public Use
  Company Number: US-009507513-1208USA006321

PATIENT
  Age: 75 None
  Sex: Female

DRUGS (5)
  1. MIRALAX [Suspect]
     Indication: CONSTIPATION
     Dosage: 17 G, QD
     Route: 048
     Dates: start: 20120726, end: 20120728
  2. MIRALAX [Suspect]
     Indication: MEDICAL OBSERVATION
  3. TRUSOPT [Concomitant]
     Indication: GLAUCOMA
     Dosage: UNK, UNKNOWN
  4. OMEPRAZOLE [Concomitant]
     Indication: PRODUCT USED FOR UNKNOWN INDICATION
     Dosage: UNK, UNKNOWN
  5. DILTIAZEM HYDROCHLORIDE [Concomitant]
     Indication: ATRIAL FIBRILLATION
     Dosage: UNK, UNKNOWN

REACTIONS (4)
  - Dizziness [Recovered/Resolved]
  - Abdominal distension [Unknown]
  - Nausea [Unknown]
  - Decreased appetite [Unknown]
